FAERS Safety Report 8849993 (Version 1)
Quarter: 2012Q4

REPORT INFORMATION
  Report Type: 
  Country: US (occurrence: US)
  Receive Date: 20121019
  Receipt Date: 20121019
  Transmission Date: 20130627
  Serious: Yes (Other)
  Sender: FDA-Public Use
  Company Number: US-ROCHE-1143274

PATIENT

DRUGS (2)
  1. BEVACIZUMAB [Suspect]
     Indication: NEOPLASM
     Route: 050
  2. PANOBINOSTAT [Concomitant]
     Indication: NEOPLASM
     Route: 050

REACTIONS (6)
  - Hypertension [Unknown]
  - Hyperglycaemia [Unknown]
  - Thrombocytopenia [Unknown]
  - Neutropenia [Unknown]
  - Hypophosphataemia [Unknown]
  - Stomatitis [Unknown]
